FAERS Safety Report 9886625 (Version 4)
Quarter: 2014Q1

REPORT INFORMATION
  Report Type: Report from Study
  Country: AU (occurrence: AU)
  Receive Date: 20140210
  Receipt Date: 20140322
  Transmission Date: 20141002
  Serious: Yes (Hospitalization)
  Sender: FDA-Public Use
  Company Number: PHHY2014AU016188

PATIENT
  Sex: Male

DRUGS (9)
  1. CLOZARIL [Suspect]
     Indication: SCHIZOPHRENIA
     Dosage: 225 MG, UNK
     Dates: start: 20070201
  2. CLOZARIL [Suspect]
     Dosage: 200 MG, UNK
  3. CLOZARIL [Suspect]
     Dosage: 175 MG, UNK
  4. CLOZARIL [Suspect]
     Dosage: 150 MG, UNK
  5. CLOZARIL [Suspect]
     Dosage: 125 MG, UNK
  6. CLOZARIL [Suspect]
     Dosage: 100 MG, UNK
  7. CLOZARIL [Suspect]
     Dosage: 50 MG, UNK
  8. CLOZARIL [Suspect]
     Dosage: 25 MG, UNK
  9. CLOZARIL [Suspect]
     Dosage: 25 MG, UNK

REACTIONS (4)
  - Schizophrenia [Unknown]
  - Mental impairment [Unknown]
  - Paranoia [Unknown]
  - Grandiosity [Unknown]
